FAERS Safety Report 4520959-1 (Version None)
Quarter: 2004Q4

REPORT INFORMATION
  Report Type: 
  Country: None (occurrence: None)
  Receive Date: 20041208
  Receipt Date: 20041203
  Transmission Date: 20050328
  Serious: Yes (Other)
  Sender: FDA-Public Use
  Company Number: US-JNJFOC-20041006058

PATIENT
  Age: 75 Year
  Sex: Female

DRUGS (4)
  1. DURAGESIC [Suspect]
     Route: 062
  2. XANAX [Concomitant]
     Route: 049
  3. PAXIL [Concomitant]
     Indication: DEPRESSION
     Route: 049
  4. INDERAL [Concomitant]
     Indication: MIGRAINE

REACTIONS (7)
  - ABDOMINAL PAIN UPPER [None]
  - APPLICATION SITE REACTION [None]
  - BLOOD PRESSURE INCREASED [None]
  - DEPRESSION [None]
  - HEADACHE [None]
  - HYPERTENSION [None]
  - WEIGHT DECREASED [None]
